FAERS Safety Report 20384986 (Version 1)
Quarter: 2022Q1

REPORT INFORMATION
  Report Type: Spontaneous
  Country: US (occurrence: None)
  Receive Date: 20220127
  Receipt Date: 20220127
  Transmission Date: 20220424
  Serious: Yes (Hospitalization)
  Sender: FDA-Public Use
  Company Number: None

PATIENT
  Sex: Female

DRUGS (15)
  1. DALFAMPRIDINE [Suspect]
     Active Substance: DALFAMPRIDINE
  2. ADVAIR DISKU AER [Concomitant]
  3. B COMPLEX CAP [Concomitant]
  4. BD SHARPS MIS 1.5QT [Concomitant]
  5. CETIRIZINE HCL [Concomitant]
  6. CINNAMON CAP [Concomitant]
  7. CO Q [Concomitant]
  8. CO-Q 10 CAP OMEGA-3; [Concomitant]
  9. HYPO NEEDLE MIS [Concomitant]
  10. KP VITAMIN D [Concomitant]
  11. MEDICAL LEG MIS WAIST HI [Concomitant]
  12. PAXIL TAB [Concomitant]
  13. TUMERIC CAP [Concomitant]
  14. VITAMIN D3 [Concomitant]
     Active Substance: CHOLECALCIFEROL
  15. ZINC [Concomitant]

REACTIONS (4)
  - Balance disorder [None]
  - Fall [None]
  - Hip surgery [None]
  - Therapy interrupted [None]
